FAERS Safety Report 8174441-3 (Version None)
Quarter: 2012Q1

REPORT INFORMATION
  Report Type: 
  Country: None (occurrence: None)
  Receive Date: 20120229
  Receipt Date: 20120222
  Transmission Date: 20120608
  Serious: Yes (Other)
  Sender: FDA-Public Use
  Company Number: US-ASTRAZENECA-2012SE12465

PATIENT
  Age: 52 Year
  Sex: Male
  Weight: 79.4 kg

DRUGS (4)
  1. DEPAKOTE [Concomitant]
  2. VICODIN [Concomitant]
  3. ANTIBIOTICS [Concomitant]
     Indication: TEETHING
  4. SEROQUEL XR [Suspect]
     Indication: BIPOLAR DISORDER
     Route: 048

REACTIONS (5)
  - FOOT FRACTURE [None]
  - WRONG TECHNIQUE IN DRUG USAGE PROCESS [None]
  - WEIGHT INCREASED [None]
  - ABASIA [None]
  - RHEUMATOID ARTHRITIS [None]
